FAERS Safety Report 7862540-2 (Version None)
Quarter: 2011Q4

REPORT INFORMATION
  Report Type: 
  Country: None (occurrence: None)
  Receive Date: 20111027
  Receipt Date: 20101109
  Transmission Date: 20120403
  Serious: Yes (Hospitalization)
  Sender: FDA-Public Use
  Company Number: US-AMGEN-USASP2010003966

PATIENT
  Age: 79 Year
  Sex: Female

DRUGS (1)
  1. ENBREL [Suspect]
     Indication: RHEUMATOID ARTHRITIS
     Dates: start: 20040713

REACTIONS (6)
  - ARTHRITIS INFECTIVE [None]
  - FATIGUE [None]
  - TOOTH FRACTURE [None]
  - THYROID DISORDER [None]
  - RASH MACULO-PAPULAR [None]
  - DYSPNOEA [None]
